FAERS Safety Report 9671812 (Version 1)
Quarter: 2013Q4

REPORT INFORMATION
  Report Type: Spontaneous
  Country: US (occurrence: None)
  Receive Date: 20131105
  Receipt Date: 20131105
  Transmission Date: 20140711
  Serious: No
  Sender: FDA-Public Use
  Company Number: None

PATIENT
  Sex: 0

DRUGS (1)
  1. LIPITOR [Suspect]
     Dates: start: 2012, end: 2012

REACTIONS (2)
  - Lung disorder [None]
  - Product quality issue [None]
